FAERS Safety Report 6935976-1 (Version None)
Quarter: 2010Q3

REPORT INFORMATION
  Report Type: 
  Country: None (occurrence: None)
  Receive Date: 20100823
  Receipt Date: 20100819
  Transmission Date: 20110219
  Serious: Yes (Other)
  Sender: FDA-Public Use
  Company Number: US-BRISTOL-MYERS SQUIBB COMPANY-15211246

PATIENT
  Age: 46 Year
  Sex: Female

DRUGS (7)
  1. ORENCIA [Suspect]
     Route: 042
     Dates: start: 20080317
  2. ARAVA [Concomitant]
  3. CYMBALTA [Concomitant]
  4. FLEXERIL [Concomitant]
  5. LASIX [Concomitant]
  6. ULTRAM [Concomitant]
  7. PREDNISONE [Concomitant]

REACTIONS (2)
  - MIGRAINE [None]
  - NAUSEA [None]
